FAERS Safety Report 16345569 (Version 1)
Quarter: 2019Q2

REPORT INFORMATION
  Report Type: Spontaneous
  Country: FR (occurrence: FR)
  Receive Date: 20190523
  Receipt Date: 20190523
  Transmission Date: 20190711
  Serious: Yes (Other)
  Sender: FDA-Public Use
  Company Number: FR-TEVA-2019-FR-1052413

PATIENT
  Age: 29 Year
  Sex: Male
  Weight: 85 kg

DRUGS (1)
  1. TRAMADOL TEVA 50 MG, COMPRIME EFFERVESCENT Q [Suspect]
     Active Substance: TRAMADOL
     Indication: PAIN
     Dosage: 50 MILLIGRAM DAILY;  FOR 5 DAYS
     Route: 048
     Dates: start: 20190423, end: 20190427

REACTIONS (5)
  - Anxiety [Recovered/Resolved]
  - Depressed level of consciousness [Recovered/Resolved]
  - Hyperhidrosis [Recovered/Resolved]
  - Confusional state [Recovered/Resolved]
  - Personality disorder [Recovered/Resolved]

NARRATIVE: CASE EVENT DATE: 20190427
